FAERS Safety Report 5133803-9 (Version None)
Quarter: 2006Q4

REPORT INFORMATION
  Report Type: 
  Country: None (occurrence: None)
  Receive Date: 20061018
  Receipt Date: 20061005
  Transmission Date: 20070319
  Serious: Yes (Other)
  Sender: FDA-Public Use
  Company Number: 14900

PATIENT
  Age: 21 Year
  Sex: Male
  Weight: 79 kg

DRUGS (41)
  1. PROPOFOL [Suspect]
     Indication: DRUG THERAPY
     Dosage: 32 MCG/KG PER MINUTE INJ
  2. PROPOFOL [Suspect]
     Indication: SEDATION
     Dosage: 32 MCG/KG PER MINUTE INJ
  3. PROPOFOL [Suspect]
     Indication: DRUG THERAPY
     Dosage: 105 MCG/KG ER MINUTE INJ
  4. PROPOFOL [Suspect]
     Indication: SEDATION
     Dosage: 105 MCG/KG ER MINUTE INJ
  5. PROPOFOL [Suspect]
     Indication: DRUG THERAPY
     Dosage: 105 MCG/KG PER MINUTE INJ
  6. PROPOFOL [Suspect]
     Indication: SEDATION
     Dosage: 105 MCG/KG PER MINUTE INJ
  7. PROPOFOL [Suspect]
     Indication: SEDATION
     Dosage: 53 MCG/KG PER MINUTE INJ
  8. PROPOFOL [Suspect]
     Indication: SEDATION
     Dosage: 158 MCG/KG PER MINUTE INJ
  9. PROPOFOL [Suspect]
     Indication: SEDATION
     Dosage: 200 MCG/KG PER MINUTE INJ
  10. PROPOFOL [Suspect]
     Indication: SEDATION
     Dosage: 74 MCG/KG PER  MINUTE INJ
  11. PROPOFOL [Suspect]
     Indication: SEDATION
     Dosage: 112.8 MCG/KG PER MINUTE INJ
  12. PROPOFOL [Suspect]
     Indication: SEDATION
     Dosage: 105 MCG/KG PER MINUTE INJ
  13. PROPOFOL [Suspect]
     Indication: SEDATION
     Dosage: 105 MCG/KG PER MINUTE INJ
  14. PROPOFOL [Suspect]
     Indication: SEDATION
     Dosage: 52.7 MCG/KG PER MINUTE INJ
  15. DOPAMINE HCL IN 5% DEXTROSE [Suspect]
     Dosage: 6.8 MCG/KG PER MINUTE INJ
  16. DOPAMINE HCL IN 5% DEXTROSE [Suspect]
     Dosage: 30.4 MCG/KG PER MINUTE INJ
  17. DOPAMINE HCL IN 5% DEXTROSE [Suspect]
     Dosage: 30.4 MCG/KG PER MINUTE INJ
  18. DOPAMINE HCL IN 5% DEXTROSE [Suspect]
     Dosage: 30.4 MCG/KG PER MINUTE INJ
  19. DOPAMINE HCL IN 5% DEXTROSE [Suspect]
     Dosage: 16.9 MCG/KG PER MINUTE INJ
  20. DOPAMINE HCL IN 5% DEXTROSE [Suspect]
     Dosage: 3.4 MCG/KG PER MINUTE INJ
  21. DOPAMINE HCL IN 5% DEXTROSE [Suspect]
  22. NOREPINEPHRINE BITARTRATE [Suspect]
     Dosage: 8 MICROGRAM PER MINUTE INJ
  23. NOREPINEPHRINE BITARTRATE [Suspect]
     Dosage: 2 MICROGRAM INJ
  24. NOREPINEPHRINE BITARTRATE [Suspect]
     Dosage: 2 MICROGRAM PER MINUTE INJ
  25. NOREPINEPHRINE BITARTRATE [Suspect]
     Dosage: 2 MICROGRAM PER MINUTE INJ
  26. NOREPINEPHRINE BITARTRATE [Suspect]
     Dosage: 8 MICROGRAM PER MINUTE INJ
  27. NOREPINEPHRINE BITARTRATE [Suspect]
     Dosage: 8 MICROGRAM PER MINUTE INJ
  28. NOREPINEPHRINE BITARTRATE [Suspect]
     Dosage: 8 MICROGRAM PER MINUTE INJ
  29. NOREPINEPHRINE BITARTRATE [Suspect]
     Dosage: 7.3 MICROGRAM PER MINUTE INJ
  30. NOREPINEPHRINE BITARTRATE [Suspect]
     Dosage: 6  MICROGRAM PER MINUTE INJ
  31. NOREPINEPHRINE BITARTRATE [Suspect]
  32. ISOFLURANE [Concomitant]
  33. FENTANYL [Concomitant]
  34. VECURONIUM BROMIDE [Concomitant]
  35. ESMOLOL HCL [Concomitant]
  36. CEFAZOLIN [Concomitant]
  37. PHENYTOIN [Concomitant]
  38. PHENYLEPHRINE [Concomitant]
  39. MANNITOL [Concomitant]
  40. MORPHINE [Concomitant]
  41. SODIUM CHLORIDE [Concomitant]

REACTIONS (19)
  - ACIDOSIS HYPERCHLORAEMIC [None]
  - CARDIOMYOPATHY [None]
  - DRUG INTERACTION [None]
  - EJECTION FRACTION DECREASED [None]
  - GASTROINTESTINAL OEDEMA [None]
  - HAEMOPHILUS INFECTION [None]
  - INFUSION RELATED REACTION [None]
  - INTRACRANIAL PRESSURE INCREASED [None]
  - LACTIC ACIDOSIS [None]
  - METABOLIC ACIDOSIS [None]
  - OLIGURIA [None]
  - PNEUMONIA [None]
  - PROPOFOL INFUSION SYNDROME [None]
  - RENAL FAILURE [None]
  - RESPIRATORY ACIDOSIS [None]
  - SINUS TACHYCARDIA [None]
  - SUBDURAL HAEMATOMA [None]
  - URINE OUTPUT DECREASED [None]
  - VENTRICULAR DYSFUNCTION [None]
